FAERS Safety Report 14296212 (Version 1)
Quarter: 2017Q4

REPORT INFORMATION
  Report Type: Spontaneous
  Country: US (occurrence: US)
  Receive Date: 20171215
  Receipt Date: 20171215
  Transmission Date: 20180321
  Serious: No
  Sender: FDA-Public Use
  Company Number: None

PATIENT
  Age: 62 Year
  Sex: Male

DRUGS (1)
  1. HUMIRA [Suspect]
     Active Substance: ADALIMUMAB
     Indication: RHEUMATOID ARTHRITIS
     Route: 058
     Dates: start: 20170923

REACTIONS (5)
  - Butterfly rash [None]
  - Rash [None]
  - Dyspnoea [None]
  - Chest discomfort [None]
  - Feeling hot [None]

NARRATIVE: CASE EVENT DATE: 20171001
